FAERS Safety Report 21784673 (Version 1)
Quarter: 2022Q4

REPORT INFORMATION
  Report Type: Spontaneous
  Country: CA (occurrence: CA)
  Receive Date: 20221227
  Receipt Date: 20221227
  Transmission Date: 20230112
  Serious: Yes (Other)
  Sender: FDA-Public Use
  Company Number: CA-PFIZER INC-202200949227

PATIENT
  Age: 86 Year
  Sex: Male
  Weight: 107 kg

DRUGS (5)
  1. RUXIENCE [Suspect]
     Active Substance: RITUXIMAB-PVVR
     Indication: Granulomatosis with polyangiitis
     Dosage: 825 MG, WEEKLY  X 4 WEEKS
     Route: 042
     Dates: start: 20220111, end: 20220201
  2. RUXIENCE [Suspect]
     Active Substance: RITUXIMAB-PVVR
     Dosage: 825 MG, WEEKLY X 4 WEEKS
     Route: 042
     Dates: start: 20220201
  3. RUXIENCE [Suspect]
     Active Substance: RITUXIMAB-PVVR
     Dosage: 500 MG, (FOR 1 DOSE - NOT YET RECEIVED)
     Route: 042
  4. RUXIENCE [Suspect]
     Active Substance: RITUXIMAB-PVVR
     Dosage: 500 MG  (FOR 1 DOSE)
     Route: 042
     Dates: start: 20220816, end: 20220816
  5. RUXIENCE [Suspect]
     Active Substance: RITUXIMAB-PVVR
     Dosage: 500 MG EVERY 4 MONTH
     Route: 042
     Dates: start: 20221219

REACTIONS (6)
  - Oxygen saturation decreased [Unknown]
  - Condition aggravated [Unknown]
  - Asthenia [Unknown]
  - Overweight [Not Recovered/Not Resolved]
  - Loss of personal independence in daily activities [Unknown]
  - Off label use [Unknown]

NARRATIVE: CASE EVENT DATE: 20220101
